FAERS Safety Report 21116675 (Version 5)
Quarter: 2022Q4

REPORT INFORMATION
  Report Type: Spontaneous
  Country: US (occurrence: US)
  Receive Date: 20220722
  Receipt Date: 20221219
  Transmission Date: 20230113
  Serious: Yes (Other)
  Sender: FDA-Public Use
  Company Number: US-PFIZER INC-202200995747

PATIENT
  Age: 78 Year
  Sex: Female
  Weight: 82.1 kg

DRUGS (1)
  1. IBRANCE [Suspect]
     Active Substance: PALBOCICLIB
     Indication: Breast cancer female
     Dosage: 125 MG, CYCLIC (TOOK 1 TABLET DAILY FOR 21 DAYS IN CYCLE)

REACTIONS (11)
  - Neuropathy peripheral [Unknown]
  - Hip arthroplasty [Unknown]
  - Knee arthroplasty [Unknown]
  - Neoplasm progression [Unknown]
  - Memory impairment [Unknown]
  - Anxiety [Unknown]
  - Crying [Unknown]
  - Decreased interest [Unknown]
  - Feeling abnormal [Unknown]
  - Insomnia [Unknown]
  - Malaise [Unknown]
